FAERS Safety Report 8807508 (Version 1)
Quarter: 2012Q4

REPORT INFORMATION
  Report Type: 
  Country: BR (occurrence: BR)
  Receive Date: 20120925
  Receipt Date: 20120925
  Transmission Date: 20130627
  Serious: Yes (Other)
  Sender: FDA-Public Use
  Company Number: BR-PFIZER INC-2012231300

PATIENT
  Age: 58 Year
  Sex: Female

DRUGS (3)
  1. XALATAN [Suspect]
     Indication: GLAUCOMA
     Dosage: one drop each eye, once a day
     Route: 047
     Dates: end: 20120915
  2. XALACOM [Suspect]
     Dosage: UNK
  3. TRAVATAN [Suspect]
     Dosage: UNK
     Dates: start: 20120906, end: 20120916

REACTIONS (5)
  - Conjunctivitis [Unknown]
  - Eye irritation [Unknown]
  - Hypersensitivity [Unknown]
  - Wrong drug administered [Recovered/Resolved]
  - Drug name confusion [Unknown]
